FAERS Safety Report 5289414-8 (Version None)
Quarter: 2007Q2

REPORT INFORMATION
  Report Type: 
  Country: None (occurrence: None)
  Receive Date: 20070404
  Receipt Date: 20070404
  Transmission Date: 20071010
  Serious: Yes (Other)
  Sender: FDA-Public Use
  Company Number: None

PATIENT
  Age: 72 Year
  Sex: Male
  Weight: 116.5744 kg

DRUGS (5)
  1. CIPROFLOXACIN [Suspect]
     Dosage: 400MG Q12 HOURS IV
     Route: 042
     Dates: start: 20070317, end: 20070319
  2. ASPIRIN [Concomitant]
  3. LISINOPRIL [Concomitant]
  4. CLOTRIMAZOLE [Concomitant]
  5. CEPACOL [Concomitant]

REACTIONS (3)
  - INJECTION SITE ERYTHEMA [None]
  - INJECTION SITE IRRITATION [None]
  - INJECTION SITE PRURITUS [None]
